FAERS Safety Report 5823551-1 (Version None)
Quarter: 2008Q3

REPORT INFORMATION
  Report Type: 
  Country: None (occurrence: None)
  Receive Date: 20080725
  Receipt Date: 20080418
  Transmission Date: 20090109
  Serious: Yes (Hospitalization)
  Sender: FDA-Public Use
  Company Number: RO-BOEHRINGER INGELHEIM GMBH, GERMANY-2008-AP-00155AP

PATIENT
  Sex: Female
  Weight: 52 kg

DRUGS (2)
  1. TIPRANAVIR + RITONAVIR CO-ADMIN [Suspect]
     Indication: HIV INFECTION
     Dosage: NORVIR STRENGTH: 100 MG; DAILY DOSE: 400 MG
     Route: 048
     Dates: start: 20060601, end: 20080501
  2. FUZEON [Concomitant]
     Indication: HIV INFECTION
     Dosage: 180 MG/ML
     Route: 058
     Dates: start: 20060601

REACTIONS (2)
  - DRUG RESISTANCE [None]
  - HEPATITIS [None]
